FAERS Safety Report 23824085 (Version 1)
Quarter: 2024Q2

REPORT INFORMATION
  Report Type: Spontaneous
  Country: US (occurrence: US)
  Receive Date: 20240507
  Receipt Date: 20240507
  Transmission Date: 20240715
  Serious: No
  Sender: FDA-Public Use
  Company Number: US-CIPLA LTD.-2023US04313

PATIENT

DRUGS (2)
  1. ALBUTEROL [Suspect]
     Active Substance: ALBUTEROL
     Indication: Lung disorder
     Dosage: UNK, BID (UNK (4 PUFFS, BID (TWICE IN MORNING AND TWICE IN EVENING) (IF NEEDED SHE TAKES MORE PUFFS)
     Dates: start: 20230221
  2. ALENDRONATE SODIUM [Concomitant]
     Active Substance: ALENDRONATE SODIUM
     Indication: Product used for unknown indication
     Dosage: 70 MILLIGRAM, ONCE A WEEK, STARTED SEVERAL MONTHS AGO
     Route: 065

REACTIONS (7)
  - Drug ineffective for unapproved indication [Unknown]
  - Device delivery system issue [Unknown]
  - Device mechanical issue [Unknown]
  - Product cleaning inadequate [Unknown]
  - Product storage error [Unknown]
  - Product container seal issue [Unknown]
  - Off label use [Unknown]

NARRATIVE: CASE EVENT DATE: 20230101
